FAERS Safety Report 4690659-6 (Version None)
Quarter: 2005Q2

REPORT INFORMATION
  Report Type: 
  Country: None (occurrence: None)
  Receive Date: 20050615
  Receipt Date: 20050607
  Transmission Date: 20051028
  Serious: Yes (Hospitalization)
  Sender: FDA-Public Use
  Company Number: GB-GLAXOSMITHKLINE-B0383906A

PATIENT
  Age: 57 Year
  Sex: Male

DRUGS (2)
  1. MALARONE [Suspect]
     Indication: MALARIA PROPHYLAXIS
     Route: 048
     Dates: end: 20050324
  2. SIMVASTATIN [Concomitant]
     Dosage: 40MG PER DAY
     Route: 048
     Dates: start: 20040905

REACTIONS (5)
  - EYE PRURITUS [None]
  - NASAL DISCOMFORT [None]
  - OCULAR HYPERAEMIA [None]
  - PRURITUS [None]
  - SWELLING FACE [None]
